FAERS Safety Report 16632135 (Version 1)
Quarter: 2019Q3

REPORT INFORMATION
  Report Type: Spontaneous
  Country: US (occurrence: US)
  Receive Date: 20190725
  Receipt Date: 20190725
  Transmission Date: 20191004
  Serious: No
  Sender: FDA-Public Use
  Company Number: US-ABBVIE-19K-163-2835437-00

PATIENT

DRUGS (1)
  1. SYNTHROID [Suspect]
     Active Substance: LEVOTHYROXINE SODIUM
     Indication: THYROID DISORDER
     Route: 048
     Dates: start: 1985

REACTIONS (8)
  - Pruritus [Unknown]
  - Chest pain [Unknown]
  - Dyspnoea [Unknown]
  - Visual impairment [Unknown]
  - Weight increased [Unknown]
  - Insomnia [Unknown]
  - Wheezing [Unknown]
  - Irritability [Unknown]
